FAERS Safety Report 11994070 (Version 2)
Quarter: 2016Q1

REPORT INFORMATION
  Report Type: Report from Study
  Country: IL (occurrence: IL)
  Receive Date: 20160203
  Receipt Date: 20160210
  Transmission Date: 20160526
  Serious: Yes (Death, Other)
  Sender: FDA-Public Use
  Company Number: IL-PFIZER INC-2015210714

PATIENT
  Age: 69 Year
  Sex: Female
  Weight: 86 kg

DRUGS (2)
  1. PALBOCICLIB [Suspect]
     Active Substance: PALBOCICLIB
     Indication: BREAST CANCER METASTATIC
     Dosage: 125 MG, ONCE DAILY
     Route: 048
     Dates: start: 20150614, end: 20150621
  2. LETROZOLE. [Concomitant]
     Active Substance: LETROZOLE
     Dosage: 2.5 MG, ONCE DAILY
     Route: 048
     Dates: start: 20150614

REACTIONS (3)
  - Neutropenia [Recovered/Resolved]
  - Thrombocytopenia [Recovered/Resolved]
  - Death [Fatal]

NARRATIVE: CASE EVENT DATE: 20150621
